FAERS Safety Report 18529670 (Version 2)
Quarter: 2020Q4

REPORT INFORMATION
  Report Type: Spontaneous
  Country: US (occurrence: US)
  Receive Date: 20201120
  Receipt Date: 20201214
  Transmission Date: 20210114
  Serious: No
  Sender: FDA-Public Use
  Company Number: US-NOVOPROD-729197

PATIENT
  Age: 45 Year
  Sex: Male

DRUGS (10)
  1. TYLENOL [Concomitant]
     Active Substance: ACETAMINOPHEN
     Indication: PRODUCT USED FOR UNKNOWN INDICATION
     Dosage: 650MG Q 6 HR PRN
     Route: 048
  2. ALBUTEROL [SALBUTAMOL] [Concomitant]
     Active Substance: ALBUTEROL
     Indication: PRODUCT USED FOR UNKNOWN INDICATION
     Dosage: INHALE 2 PUFFS Q6 HOURS
     Route: 055
  3. NOVOLOG [Suspect]
     Active Substance: INSULIN ASPART
     Dosage: 36 IU, QD (MAX)
     Route: 058
     Dates: start: 202002
  4. LEVEMIR [Suspect]
     Active Substance: INSULIN DETEMIR
     Indication: LATENT AUTOIMMUNE DIABETES IN ADULTS
     Dosage: 16 UNITS
     Route: 058
     Dates: start: 202002
  5. NOVOLOG [Suspect]
     Active Substance: INSULIN ASPART
     Dosage: AC PLUS SLIDIING SCALE
     Route: 058
     Dates: start: 202002
  6. NOVOLOG [Suspect]
     Active Substance: INSULIN ASPART
     Indication: LATENT AUTOIMMUNE DIABETES IN ADULTS
     Dosage: 6 IU, TID
     Route: 058
     Dates: start: 202002
  7. ZOLOFT [Concomitant]
     Active Substance: SERTRALINE HYDROCHLORIDE
     Indication: PRODUCT USED FOR UNKNOWN INDICATION
     Dosage: DAILY
     Route: 048
  8. LEVEMIR [Suspect]
     Active Substance: INSULIN DETEMIR
     Dosage: 18 UNITS
     Route: 058
     Dates: start: 202002
  9. BUSPIRONE [Concomitant]
     Active Substance: BUSPIRONE HYDROCHLORIDE
     Indication: PRODUCT USED FOR UNKNOWN INDICATION
     Dosage: 10 MG, BID
     Route: 048
  10. LISINOPRIL. [Concomitant]
     Active Substance: LISINOPRIL
     Indication: PRODUCT USED FOR UNKNOWN INDICATION
     Dosage: 5 MG, QD
     Route: 048

REACTIONS (3)
  - Blood glucose decreased [Unknown]
  - Hernia [Not Recovered/Not Resolved]
  - Blood glucose increased [Not Recovered/Not Resolved]

NARRATIVE: CASE EVENT DATE: 202002
